FAERS Safety Report 16542265 (Version 7)
Quarter: 2022Q1

REPORT INFORMATION
  Report Type: Spontaneous
  Country: GB (occurrence: GB)
  Receive Date: 20190708
  Receipt Date: 20220309
  Transmission Date: 20220423
  Serious: Yes (Disabling, Other)
  Sender: FDA-Public Use
  Company Number: PHHY2019GB155758

PATIENT
  Sex: Male
  Weight: 63.53 kg

DRUGS (17)
  1. LEUCOVORIN CALCIUM [Suspect]
     Active Substance: LEUCOVORIN CALCIUM
     Indication: Cardiovascular disorder
     Dosage: 800 MG, QD
     Route: 065
  2. HYDROXOCOBALAMIN [Suspect]
     Active Substance: HYDROXOCOBALAMIN
     Indication: Product used for unknown indication
     Dosage: UNK (STANDARD LOADING DOSE)
     Route: 030
     Dates: start: 201901
  3. HYDROXOCOBALAMIN [Suspect]
     Active Substance: HYDROXOCOBALAMIN
     Dosage: UNK (TOP UP DOSE)
     Route: 030
     Dates: start: 201904
  4. OMEPRAZOLE [Suspect]
     Active Substance: OMEPRAZOLE
     Indication: Gastrooesophageal reflux disease
     Dosage: 40 MG, QD (OMEPRAZOLE 40 MG DAILY)
     Route: 048
     Dates: start: 1992, end: 200202
  5. OMEPRAZOLE [Suspect]
     Active Substance: OMEPRAZOLE
     Indication: Duodenal ulcer
     Dosage: 20 MG, QD
     Route: 065
     Dates: start: 201812
  6. OMEPRAZOLE [Suspect]
     Active Substance: OMEPRAZOLE
     Dosage: 20 MG, QD (OMEPRAZOLE CHEMO IBERICA 20 MG ONCE DAILY)
     Route: 048
     Dates: start: 2002, end: 2017
  7. OMEPRAZOLE [Suspect]
     Active Substance: OMEPRAZOLE
     Dosage: 1 DF, QD
     Route: 065
  8. OMEPRAZOLE [Suspect]
     Active Substance: OMEPRAZOLE
     Dosage: OMEPRAZOLE CHEMO IBERICA 20 MG ONCE DAILY
     Route: 048
     Dates: start: 2019
  9. OMEPRAZOLE [Suspect]
     Active Substance: OMEPRAZOLE
     Dosage: 1 DF, QD
     Route: 065
  10. OMEPRAZOLE [Suspect]
     Active Substance: OMEPRAZOLE
     Dosage: 20 MG, QD
     Route: 048
     Dates: start: 2002, end: 2017
  11. OMEPRAZOLE [Suspect]
     Active Substance: OMEPRAZOLE
     Dosage: 20 MG, QD (OMEPRAZOLE CHEMO IBERICA 20 MG ONCE DAILY)
     Route: 048
     Dates: start: 2019
  12. SIMVASTATIN [Concomitant]
     Active Substance: SIMVASTATIN
     Indication: Cardiovascular event prophylaxis
     Dosage: 40 MG, QD (SIMVASTATIN 40 MG DAILY)
     Route: 065
     Dates: start: 2004
  13. ROPINIROLE [Concomitant]
     Active Substance: ROPINIROLE
     Indication: Periodic limb movement disorder
     Dosage: 2 MG, TID
     Route: 065
     Dates: start: 2002
  14. ROPINIROLE [Concomitant]
     Active Substance: ROPINIROLE
     Dosage: 6 MG, QD (ROPINIROLE 2 MG TDS)
     Route: 065
     Dates: start: 2002
  15. ASPIRIN [Concomitant]
     Active Substance: ASPIRIN
     Indication: Cardiovascular event prophylaxis
     Dosage: 75 MG, QD (ASPIRIN 75 MG DAILY)
     Route: 065
     Dates: start: 2001
  16. FOLIC ACID [Concomitant]
     Active Substance: FOLIC ACID
     Indication: Cardiovascular event prophylaxis
     Dosage: 800 UG, QD (FOLIC ACID 800 MCG DAILY)
     Route: 065
     Dates: start: 2004
  17. RISEDRONATE SODIUM [Concomitant]
     Active Substance: RISEDRONATE SODIUM
     Indication: Osteoporosis
     Dosage: 35 MG, QW (RISEDRONIC ACID 35 MG WEEKLY)
     Route: 065
     Dates: start: 201802

REACTIONS (20)
  - Neuropathy peripheral [Not Recovered/Not Resolved]
  - Neuropathy vitamin B12 deficiency [Unknown]
  - Spinal compression fracture [Unknown]
  - Neuropathy vitamin B12 deficiency [Not Recovered/Not Resolved]
  - Restless legs syndrome [Not Recovered/Not Resolved]
  - Ulna fracture [Unknown]
  - Fall [Unknown]
  - Fall [Unknown]
  - Malabsorption [Not Recovered/Not Resolved]
  - Osteoporosis [Not Recovered/Not Resolved]
  - Peripheral sensorimotor neuropathy [Unknown]
  - Incorrect product administration duration [Unknown]
  - Asthenia [Unknown]
  - Balance disorder [Unknown]
  - Exercise tolerance decreased [Unknown]
  - Sensory loss [Unknown]
  - Hypoaesthesia [Unknown]
  - Hand deformity [Unknown]
  - Somnolence [Unknown]
  - Treatment failure [Unknown]

NARRATIVE: CASE EVENT DATE: 19920101
